FAERS Safety Report 4384307-2 (Version None)
Quarter: 2004Q2

REPORT INFORMATION
  Report Type: 
  Country: None (occurrence: None)
  Receive Date: 20040621
  Receipt Date: 20040611
  Transmission Date: 20050107
  Serious: Yes (Life-Threatening, Hospitalization)
  Sender: FDA-Public Use
  Company Number: 2004-06-0091

PATIENT
  Age: 60 Year
  Sex: Male
  Weight: 59 kg

DRUGS (8)
  1. REBETOL [Suspect]
     Indication: HEPATITIS C
     Dosage: 600 MG ORAL
     Route: 048
     Dates: start: 20040428, end: 20040518
  2. INTRON A [Suspect]
     Indication: HEPATITIS C
     Dosage: 10 MU QD-TIW INTRAMUSCULAR
     Route: 030
     Dates: start: 20040428, end: 20040517
  3. DIOVAN [Concomitant]
  4. BUFFERIN [Concomitant]
  5. WARFARIN POTASSIUM [Concomitant]
  6. ISOSORBIDE MONONITRATE [Concomitant]
  7. SIGMART [Concomitant]
  8. PLETAL [Concomitant]

REACTIONS (3)
  - ANAEMIA [None]
  - ANGINA PECTORIS [None]
  - CORONARY ARTERY STENOSIS [None]
